FAERS Safety Report 8368449-2 (Version None)
Quarter: 2012Q2

REPORT INFORMATION
  Report Type: 
  Country: None (occurrence: None)
  Receive Date: 20120518
  Receipt Date: 20120515
  Transmission Date: 20120825
  Serious: Yes (Hospitalization, Other)
  Sender: FDA-Public Use
  Company Number: FR-AMGEN-FRASP2012030290

PATIENT
  Age: 55 Year
  Sex: Male

DRUGS (20)
  1. CERUBIDINE [Suspect]
     Indication: ACUTE MYELOMONOCYTIC LEUKAEMIA
     Dosage: 120 MG, UNK
     Route: 042
     Dates: start: 20120223, end: 20120225
  2. VANCOMYCIN [Concomitant]
     Indication: LUNG DISORDER
     Dosage: UNK
     Route: 042
     Dates: start: 20120301, end: 20120314
  3. ACYCLOVIR [Concomitant]
     Indication: ACUTE MYELOMONOCYTIC LEUKAEMIA
     Dosage: 500 MG, BID
     Dates: start: 20120228, end: 20120314
  4. ROVAMYCINE                         /00074401/ [Concomitant]
     Indication: LUNG DISORDER
     Dosage: UNK
     Route: 042
     Dates: start: 20120301, end: 20120314
  5. HYDREA [Concomitant]
     Indication: ACUTE MYELOMONOCYTIC LEUKAEMIA
     Dosage: 3 G, UNK
     Dates: start: 20120206, end: 20120222
  6. PERIKABIVEN [Concomitant]
     Indication: PARENTERAL NUTRITION
     Dosage: UNK
     Dates: start: 20120229, end: 20120301
  7. CEFTRIAXONE SODIUM [Concomitant]
     Indication: HYPERTHERMIA
     Dosage: 2 G, UNK
     Route: 042
     Dates: start: 20120228, end: 20120301
  8. TIORFAN [Concomitant]
     Dosage: UNK
     Route: 048
     Dates: start: 20120226, end: 20120227
  9. PRIMPERAN TAB [Suspect]
     Indication: VOMITING
     Dosage: UNK
     Dates: start: 20120224, end: 20120301
  10. KABIVEN [Concomitant]
     Indication: PARENTERAL NUTRITION
     Dosage: UNK
     Dates: start: 20120301
  11. FOLIC ACID [Concomitant]
     Dosage: UNK
     Route: 048
     Dates: start: 20120201, end: 20120201
  12. LASIX [Concomitant]
     Dosage: UNK
     Route: 042
     Dates: start: 20120224, end: 20120226
  13. CYTARABINE [Suspect]
     Indication: ACUTE MYELOMONOCYTIC LEUKAEMIA
     Dosage: 1 G, QD
     Route: 042
     Dates: start: 20120223, end: 20120225
  14. ONDANSETRON [Concomitant]
     Indication: VOMITING
     Dosage: 8 MG, UNK
     Route: 042
     Dates: start: 20120223, end: 20120225
  15. ACETAMINOPHEN [Concomitant]
     Dosage: UNK
     Route: 048
     Dates: start: 20120225, end: 20120226
  16. GAVISCON [Concomitant]
     Dosage: UNK
     Route: 048
     Dates: start: 20120226, end: 20120227
  17. NEUPOGEN [Suspect]
     Indication: ACUTE MYELOMONOCYTIC LEUKAEMIA
     Dosage: 450 MUG, UNK
     Route: 042
     Dates: start: 20120223, end: 20120302
  18. ACETAMINOPHEN [Concomitant]
     Dosage: UNK
     Route: 042
     Dates: start: 20120226
  19. PIPERACILLINE PANPHARMA [Concomitant]
     Indication: ACUTE MYELOMONOCYTIC LEUKAEMIA
     Dosage: 4 G, Q8H
     Route: 042
     Dates: start: 20120301, end: 20120307
  20. TRAMADOL HYDROCHLORIDE [Concomitant]
     Dosage: UNK
     Route: 042
     Dates: start: 20120228

REACTIONS (9)
  - LUNG DISORDER [None]
  - HYPERBILIRUBINAEMIA [None]
  - APLASIA [None]
  - ACUTE RESPIRATORY DISTRESS SYNDROME [None]
  - ABDOMINAL PAIN [None]
  - PLEURAL EFFUSION [None]
  - PYREXIA [None]
  - CHOLESTASIS [None]
  - DIARRHOEA [None]
